FAERS Safety Report 5837775-0 (Version None)
Quarter: 2008Q3

REPORT INFORMATION
  Report Type: 
  Country: None (occurrence: None)
  Receive Date: 20080807
  Receipt Date: 20080724
  Transmission Date: 20090109
  Serious: Yes (Hospitalization)
  Sender: FDA-Public Use
  Company Number: NL-GENENTECH-265678

PATIENT
  Sex: Female

DRUGS (7)
  1. BEVACIZUMAB [Suspect]
     Indication: COLORECTAL CANCER
     Dosage: 400 MG, QD
     Route: 042
     Dates: start: 20060626
  2. CAPECITABINE [Suspect]
     Indication: COLORECTAL CANCER
     Dosage: 3300 MG, QD
     Route: 048
     Dates: start: 20060626
  3. OXALIPLATIN [Suspect]
     Indication: COLORECTAL CANCER
     Dosage: 220 MG, QD
     Route: 042
     Dates: start: 20060626
  4. CETUXIMAB [Suspect]
     Indication: COLORECTAL CANCER
     Dosage: 400 MG, QD
     Route: 042
     Dates: start: 20060626
  5. METOCLOPRAMIDE [Concomitant]
     Indication: DRUG USE FOR UNKNOWN INDICATION
  6. LOPERAMIDE HCL [Concomitant]
     Indication: DRUG USE FOR UNKNOWN INDICATION
  7. NEXIUM [Concomitant]
     Indication: DRUG USE FOR UNKNOWN INDICATION

REACTIONS (3)
  - ABDOMINAL PAIN [None]
  - DEHYDRATION [None]
  - PYREXIA [None]
